FAERS Safety Report 23696048 (Version 2)
Quarter: 2024Q2

REPORT INFORMATION
  Report Type: Spontaneous
  Country: CA (occurrence: CA)
  Receive Date: 20240402
  Receipt Date: 20240408
  Transmission Date: 20240715
  Serious: Yes (Death)
  Sender: FDA-Public Use
  Company Number: CA-862174955-ML2024-01945

PATIENT
  Age: 78 Year
  Sex: Male
  Weight: 75 kg

DRUGS (1)
  1. RANOLAZINE [Suspect]
     Active Substance: RANOLAZINE
     Indication: Product used for unknown indication
     Dosage: 500 MG - 1 TABLET BY MOUTH TWICE DAILY
     Route: 048
     Dates: start: 20240110

REACTIONS (1)
  - Death [Fatal]

NARRATIVE: CASE EVENT DATE: 20240305
